FAERS Safety Report 13695708 (Version 2)
Quarter: 2017Q3

REPORT INFORMATION
  Report Type: Spontaneous
  Country: FR (occurrence: FR)
  Receive Date: 20170627
  Receipt Date: 20170703
  Transmission Date: 20171127
  Serious: Yes (Death, Hospitalization, Other)
  Sender: FDA-Public Use
  Company Number: FR-EXELIXIS-CABO-17009583

PATIENT
  Age: 74 Year
  Sex: Male
  Weight: 62 kg

DRUGS (2)
  1. COMETRIQ [Suspect]
     Active Substance: CABOZANTINIB S-MALATE
     Indication: THYROID CANCER
     Dosage: 60 MG, QD
     Route: 048
     Dates: start: 201503, end: 201609
  2. COMETRIQ [Suspect]
     Active Substance: CABOZANTINIB S-MALATE
     Dosage: 60 MG, QD
     Route: 048
     Dates: start: 20170517, end: 20170604

REACTIONS (3)
  - Malignant neoplasm progression [Unknown]
  - Haemoptysis [Fatal]
  - Tracheo-oesophageal fistula [Not Recovered/Not Resolved]

NARRATIVE: CASE EVENT DATE: 201609
